FAERS Safety Report 6736861-0 (Version None)
Quarter: 2010Q2

REPORT INFORMATION
  Report Type: 
  Country: None (occurrence: None)
  Receive Date: 20100520
  Receipt Date: 20100520
  Transmission Date: 20101027
  Serious: No
  Sender: FDA-Public Use
  Company Number: None

PATIENT
  Age: 65 Year
  Sex: Female
  Weight: 83.9154 kg

DRUGS (1)
  1. LEVAQUIN [Suspect]
     Indication: EAR INFECTION
     Dates: start: 20100512, end: 20100517

REACTIONS (4)
  - ARTHRALGIA [None]
  - EMOTIONAL DISTRESS [None]
  - MOBILITY DECREASED [None]
  - MYALGIA [None]
